FAERS Safety Report 10263351 (Version 1)
Quarter: 2014Q2

REPORT INFORMATION
  Report Type: Spontaneous
  Country: ES (occurrence: GB)
  Receive Date: 20140626
  Receipt Date: 20140626
  Transmission Date: 20141212
  Serious: Yes (Hospitalization)
  Sender: FDA-Public Use
  Company Number: GB-FRI-1000068496

PATIENT
  Age: 67 Year
  Sex: Male

DRUGS (10)
  1. ACLIDINIUM [Suspect]
     Indication: CHRONIC OBSTRUCTIVE PULMONARY DISEASE
     Dosage: 2 DF
     Route: 055
     Dates: start: 20130801, end: 20131002
  2. ASPIRIN [Concomitant]
     Dosage: 75 MG
     Route: 048
  3. CARBOCISTEINE [Concomitant]
     Dosage: 3 DF
     Route: 048
  4. MEBEVERINE [Concomitant]
     Route: 048
  5. OMEPRAZOLE [Concomitant]
     Dosage: 20 MG
     Route: 048
  6. PERINDOPRIL ARGININE [Concomitant]
     Dosage: 5 MG
     Route: 048
  7. SALBUTAMOL [Concomitant]
     Route: 055
  8. SYMBICORT [Concomitant]
     Dosage: 4 DF
     Route: 055
  9. TAMSULOSIN [Concomitant]
     Dosage: 400 MCG
     Route: 048
  10. TRIMETHOPRIM [Concomitant]
     Dosage: 400 MG
     Route: 048

REACTIONS (6)
  - Atrial fibrillation [Unknown]
  - Dyspnoea [Unknown]
  - Crepitations [Unknown]
  - Cardiomegaly [Unknown]
  - Malaise [Unknown]
  - Oedema [Unknown]
